FAERS Safety Report 6951866-2 (Version None)
Quarter: 2010Q3

REPORT INFORMATION
  Report Type: 
  Country: None (occurrence: None)
  Receive Date: 20100829
  Receipt Date: 20100412
  Transmission Date: 20110219
  Serious: No
  Sender: FDA-Public Use
  Company Number: US-ABBOTT-10P-163-0639124-00

PATIENT
  Sex: Female
  Weight: 84.444 kg

DRUGS (2)
  1. NIASPAN [Suspect]
     Indication: BLOOD TRIGLYCERIDES INCREASED
     Dosage: 500 MG EVERY NIGHT
  2. NIASPAN [Suspect]
     Indication: LDL/HDL RATIO DECREASED
     Dosage: 1000 MG EVERY NIGHT

REACTIONS (3)
  - DIZZINESS [None]
  - FLUSHING [None]
  - PAIN [None]
